FAERS Safety Report 20494309 (Version 2)
Quarter: 2022Q2

REPORT INFORMATION
  Report Type: Spontaneous
  Country: US (occurrence: US)
  Receive Date: 20220221
  Receipt Date: 20220616
  Transmission Date: 20220721
  Serious: No
  Sender: FDA-Public Use
  Company Number: US-SA-SAC20220214001069

PATIENT
  Age: 63 Year
  Sex: Female

DRUGS (11)
  1. DUPIXENT [Suspect]
     Active Substance: DUPILUMAB
     Indication: Dermatitis atopic
     Dosage: UNK UNK, 1X
     Route: 058
     Dates: start: 20210428
  2. DUPIXENT [Suspect]
     Active Substance: DUPILUMAB
     Dosage: 300 MG, QOW
     Route: 058
     Dates: start: 20210428
  3. DOXYCYCLINE [Concomitant]
     Active Substance: DOXYCYCLINE
  4. LISINOPRIL [Concomitant]
     Active Substance: LISINOPRIL
  5. ZINC [Concomitant]
     Active Substance: ZINC
  6. IBUPROFEN [Concomitant]
     Active Substance: IBUPROFEN
  7. PREGABALIN [Concomitant]
     Active Substance: PREGABALIN
  8. TACROLIMUS [Concomitant]
     Active Substance: TACROLIMUS
  9. HYDROCHLOROTHIAZIDE [Concomitant]
     Active Substance: HYDROCHLOROTHIAZIDE
  10. HYDROCODONE BITARTRATE AND ACETAMINOPHEN [Concomitant]
     Active Substance: ACETAMINOPHEN\HYDROCODONE BITARTRATE
  11. HYDROCHLOROTHIAZIDE\LISINOPRIL [Concomitant]
     Active Substance: HYDROCHLOROTHIAZIDE\LISINOPRIL

REACTIONS (1)
  - Dermatitis atopic [Not Recovered/Not Resolved]
